FAERS Safety Report 9048424 (Version 1)
Quarter: 2013Q1

REPORT INFORMATION
  Report Type: Spontaneous
  Country: US (occurrence: None)
  Receive Date: 20130114
  Receipt Date: 20130114
  Transmission Date: 20140127
  Serious: Yes (Death, Other)
  Sender: FDA-Public Use
  Company Number: ADR-APL-2013-00108

PATIENT
  Age: 24 Year
  Sex: Female

DRUGS (4)
  1. CARISOPRODOL (CARISOPRODOL) [Suspect]
     Indication: PRODUCT USED FOR UNKNOWN INDICATION
  2. ACETAMINOPHEN\HYDROCODONE [Suspect]
     Route: 048
  3. ETHANOL [Suspect]
  4. IBUPROFEN (IBUPROFEN) [Suspect]

REACTIONS (4)
  - Respiratory arrest [None]
  - Cardiac arrest [None]
  - Completed suicide [None]
  - Toxicity to various agents [None]
